FAERS Safety Report 14255312 (Version 1)
Quarter: 2017Q4

REPORT INFORMATION
  Report Type: Report from Study
  Country: MX (occurrence: MX)
  Receive Date: 20171206
  Receipt Date: 20171206
  Transmission Date: 20180321
  Serious: Yes (Death, Other)
  Sender: FDA-Public Use
  Company Number: MX-AMGEN-MEXSL2017180668

PATIENT
  Age: 61 Year
  Sex: Female

DRUGS (1)
  1. VECTIBIX [Suspect]
     Active Substance: PANITUMUMAB
     Indication: COLORECTAL CANCER METASTATIC
     Dosage: UNK (EVERY 15 DAYS)
     Route: 065
     Dates: start: 20170530, end: 20170913

REACTIONS (1)
  - Death [Fatal]

NARRATIVE: CASE EVENT DATE: 20171201
